FAERS Safety Report 7608630-0 (Version None)
Quarter: 2011Q3

REPORT INFORMATION
  Report Type: 
  Country: None (occurrence: None)
  Receive Date: 20110713
  Receipt Date: 20110713
  Transmission Date: 20111222
  Serious: Yes (Death)
  Sender: FDA-Public Use
  Company Number: None

PATIENT
  Age: 34 Year
  Sex: Male
  Weight: 165.5629 kg

DRUGS (10)
  1. METHADONE HCL [Suspect]
     Indication: PAIN
     Dosage: 10MG 4 TIMES A DAY PO
     Route: 048
     Dates: start: 20110503, end: 20110507
  2. RISPERIDONE [Concomitant]
  3. LISINOPRIL [Concomitant]
  4. SIMVASTATIN [Concomitant]
  5. CLONAZEPAM [Concomitant]
  6. LANTUS [Concomitant]
  7. HUMALOG [Concomitant]
  8. MIRTAZAPINE [Concomitant]
  9. ASPIRIN [Concomitant]
  10. OXCARBAZEPINE [Concomitant]

REACTIONS (3)
  - TOXICITY TO VARIOUS AGENTS [None]
  - CONTRAINDICATION TO MEDICAL TREATMENT [None]
  - DRUG INTERACTION [None]
